FAERS Safety Report 6074650-3 (Version None)
Quarter: 2009Q1

REPORT INFORMATION
  Report Type: 
  Country: None (occurrence: None)
  Receive Date: 20090209
  Receipt Date: 20090209
  Transmission Date: 20090719
  Serious: No
  Sender: FDA-Public Use
  Company Number: None

PATIENT
  Age: 66 Year
  Sex: Female
  Weight: 77.1115 kg

DRUGS (5)
  1. REGLAN [Suspect]
     Indication: IMPAIRED GASTRIC EMPTYING
     Dosage: 10 MG TID PO
     Route: 048
     Dates: start: 20080606, end: 20080609
  2. LEXAPRO [Concomitant]
  3. SYNTHROID [Concomitant]
  4. MAXZIDE [Concomitant]
  5. ACIPHEX [Concomitant]

REACTIONS (1)
  - DRUG HYPERSENSITIVITY [None]
